FAERS Safety Report 8531520-6 (Version None)
Quarter: 2012Q3

REPORT INFORMATION
  Report Type: 
  Country: None (occurrence: None)
  Receive Date: 20120710
  Receipt Date: 20120626
  Transmission Date: 20120928
  Serious: Yes (Death, Hospitalization)
  Sender: FDA-Public Use
  Company Number: UTC-019861

PATIENT
  Age: 35 Year
  Sex: Female
  Weight: 65.91 kg

DRUGS (2)
  1. REVATIO [Concomitant]
  2. REMODULIN [Suspect]
     Indication: PULMONARY HYPERTENSION
     Dosage: INTRAVENOUS
     Route: 042
     Dates: start: 20120412

REACTIONS (3)
  - PLEURAL EFFUSION [None]
  - DYSPNOEA [None]
  - HAEMOPTYSIS [None]
